FAERS Safety Report 6155214-X (Version None)
Quarter: 2009Q2

REPORT INFORMATION
  Report Type: 
  Country: None (occurrence: None)
  Receive Date: 20090410
  Receipt Date: 20090410
  Transmission Date: 20091009
  Serious: Yes (Death)
  Sender: FDA-Public Use
  Company Number: None

PATIENT
  Sex: Female
  Weight: 48.9885 kg

DRUGS (1)
  1. CEFEPIME [Suspect]
     Indication: URINARY TRACT INFECTION
     Dosage: IV VIA DIAL A FLOW EVERY 12 HOURS IV DRIP
     Route: 041
     Dates: start: 20080714, end: 20080718

REACTIONS (7)
  - COGNITIVE DISORDER [None]
  - GENERAL PHYSICAL HEALTH DETERIORATION [None]
  - IMMOBILE [None]
  - MENTAL STATUS CHANGES [None]
  - MYOCLONUS [None]
  - TREMOR [None]
  - UNRESPONSIVE TO STIMULI [None]
